FAERS Safety Report 5062763-4 (Version None)
Quarter: 2006Q3

REPORT INFORMATION
  Report Type: 
  Country: None (occurrence: None)
  Receive Date: 20060725
  Receipt Date: 20060725
  Transmission Date: 20061208
  Serious: Yes (Hospitalization)
  Sender: FDA-Public Use
  Company Number: None

PATIENT
  Sex: Male

DRUGS (3)
  1. PACLITAXEL [Suspect]
     Dosage: 487MG
  2. CARBOPLATIN [Suspect]
     Dosage: 1608 MG
  3. ERBITUX [Suspect]
     Dosage: 2801 MG

REACTIONS (5)
  - DEHYDRATION [None]
  - DIZZINESS POSTURAL [None]
  - PRODUCTIVE COUGH [None]
  - PYREXIA [None]
  - SPUTUM DISCOLOURED [None]
